FAERS Safety Report 7055437-1 (Version None)
Quarter: 2010Q4

REPORT INFORMATION
  Report Type: 
  Country: None (occurrence: None)
  Receive Date: 20101019
  Receipt Date: 20101019
  Transmission Date: 20110411
  Serious: No
  Sender: FDA-Public Use
  Company Number: None

PATIENT
  Sex: Male
  Weight: 80.7403 kg

DRUGS (3)
  1. METOPROLOL SUCCINATE EXTENDED RELEASE [Suspect]
     Indication: CARDIAC FAILURE
     Dates: start: 20060101
  2. METOPROLOL SUCCINATE EXTENDED RELEASE [Suspect]
     Indication: CHEST PAIN
     Dates: start: 20060101
  3. METOPROLOL SUCCINATE EXTENDED RELEASE [Suspect]
     Indication: HYPERTENSION
     Dates: start: 20060101

REACTIONS (5)
  - ABNORMAL DREAMS [None]
  - DYSPNOEA [None]
  - FATIGUE [None]
  - HYPERSENSITIVITY [None]
  - INSOMNIA [None]
